FAERS Safety Report 8093545-7 (Version None)
Quarter: 2012Q1

REPORT INFORMATION
  Report Type: 
  Country: None (occurrence: None)
  Receive Date: 20120129
  Receipt Date: 20111017
  Transmission Date: 20120608
  Serious: No
  Sender: FDA-Public Use
  Company Number: US-ABBOTT-11P-163-0865709-00

PATIENT
  Sex: Male

DRUGS (2)
  1. BLOOD PRESSURE MEDICATION [Concomitant]
     Indication: PRODUCT USED FOR UNKNOWN INDICATION
     Dates: start: 20110801
  2. HUMIRA [Suspect]
     Indication: PSORIASIS
     Dates: start: 20110901

REACTIONS (2)
  - RHINORRHOEA [None]
  - COUGH [None]
